FAERS Safety Report 5378760-5 (Version None)
Quarter: 2007Q3

REPORT INFORMATION
  Report Type: 
  Country: None (occurrence: None)
  Receive Date: 20070705
  Receipt Date: 20070627
  Transmission Date: 20080115
  Serious: Yes (Hospitalization)
  Sender: FDA-Public Use
  Company Number: B0477676A

PATIENT
  Age: 71 Year
  Sex: Female
  Weight: 48 kg

DRUGS (13)
  1. QUILONORM RETARD [Suspect]
     Indication: DRUG USE FOR UNKNOWN INDICATION
     Route: 048
  2. CIPRALEX [Suspect]
     Indication: DRUG USE FOR UNKNOWN INDICATION
     Route: 048
  3. NEXIUM [Suspect]
     Indication: DRUG USE FOR UNKNOWN INDICATION
     Dosage: 20MG PER DAY
     Route: 048
     Dates: start: 20070326
  4. RIVOTRIL [Concomitant]
     Dosage: 1MG PER DAY
     Route: 048
     Dates: start: 20070330
  5. RIVOTRIL [Concomitant]
     Dosage: 1.5MG PER DAY
     Route: 048
     Dates: start: 20070331, end: 20070405
  6. RIVOTRIL [Concomitant]
     Dosage: 1.25MG PER DAY
     Route: 048
     Dates: start: 20070406
  7. RIVOTRIL [Concomitant]
     Dosage: 1MG PER DAY
     Route: 048
     Dates: start: 20070407, end: 20070412
  8. RIVOTRIL [Concomitant]
     Route: 048
     Dates: start: 20070413
  9. RISPERDAL [Concomitant]
     Dosage: 1MG PER DAY
     Route: 048
     Dates: start: 20070402, end: 20070403
  10. RISPERDAL [Concomitant]
     Dosage: 2MG PER DAY
     Route: 048
     Dates: start: 20070404, end: 20070423
  11. RISPERDAL [Concomitant]
     Dosage: 1MG PER DAY
     Route: 048
     Dates: start: 20070424, end: 20070426
  12. ARICEPT [Concomitant]
     Dosage: 5MG PER DAY
     Route: 048
     Dates: start: 20070412, end: 20070422
  13. ARICEPT [Concomitant]
     Dosage: 10MG PER DAY
     Route: 048
     Dates: start: 20070423

REACTIONS (9)
  - ACTIVITIES OF DAILY LIVING IMPAIRED [None]
  - DRUG INTERACTION [None]
  - DYSSTASIA [None]
  - EATING DISORDER [None]
  - GAIT DISTURBANCE [None]
  - MOBILITY DECREASED [None]
  - MUSCULOSKELETAL STIFFNESS [None]
  - PARKINSONISM [None]
  - SALIVARY HYPERSECRETION [None]
